FAERS Safety Report 6429107-4 (Version None)
Quarter: 2009Q4

REPORT INFORMATION
  Report Type: 
  Country: None (occurrence: None)
  Receive Date: 20091105
  Receipt Date: 20091028
  Transmission Date: 20100525
  Serious: Yes (Hospitalization, Other)
  Sender: FDA-Public Use
  Company Number: US-BAYER-200916176BCC

PATIENT
  Age: 88 Year
  Sex: Female

DRUGS (7)
  1. ASPIRIN [Suspect]
     Indication: ATRIAL FIBRILLATION
     Dosage: UNIT DOSE: 81 MG
     Route: 048
     Dates: start: 20080101, end: 20091019
  2. PLAVIX [Suspect]
     Indication: ATRIAL FIBRILLATION
     Dosage: TOTAL DAILY DOSE: 75 MG  UNIT DOSE: 75 MG
     Route: 048
     Dates: start: 20091016, end: 20091019
  3. DRONEDARONE [Concomitant]
     Indication: ATRIAL FIBRILLATION
     Dosage: TOTAL DAILY DOSE: 200 MG  UNIT DOSE: 400 MG
     Route: 048
     Dates: start: 20090901
  4. DRONEDARONE [Concomitant]
     Dosage: TOTAL DAILY DOSE: 600 MG  UNIT DOSE: 400 MG
     Route: 048
  5. DRONEDARONE [Concomitant]
     Dosage: TOTAL DAILY DOSE: 800 MG  UNIT DOSE: 400 MG
     Route: 048
  6. DRONEDARONE [Concomitant]
     Dosage: TOTAL DAILY DOSE: 400 MG  UNIT DOSE: 400 MG
     Route: 048
  7. VITAMINS [Concomitant]
     Route: 065

REACTIONS (1)
  - EPISTAXIS [None]
